FAERS Safety Report 9205866 (Version 1)
Quarter: 2013Q2

REPORT INFORMATION
  Report Type: Spontaneous
  Country: US (occurrence: None)
  Receive Date: 20130401
  Receipt Date: 20130401
  Transmission Date: 20140414
  Serious: Yes (Death)
  Sender: FDA-Public Use
  Company Number: ACO_34963_2013

PATIENT
  Age: 61 Year
  Sex: Male

DRUGS (5)
  1. AMPYRA (DALFAMPRIDINE) TABLET, 10MG [Suspect]
     Indication: PRODUCT USED FOR UNKNOWN INDICATION
  2. SYNTHROID (LEVOTHYROXINE SODIUM) [Concomitant]
  3. COPAXONE (GLATIRAMER ACETATE) [Concomitant]
  4. CALCITRATE (CALCIUM CITRATE) [Concomitant]
  5. HYDROCHLOROTHIAZIDE WITH TRIAMTERENE (HYDROCHLOROTHIAZIDE, TRIAMTERENE) [Concomitant]

REACTIONS (1)
  - Death [None]
